FAERS Safety Report 5930666-6 (Version None)
Quarter: 2008Q4

REPORT INFORMATION
  Report Type: 
  Country: None (occurrence: None)
  Receive Date: 20081027
  Receipt Date: 20050616
  Transmission Date: 20090506
  Serious: Yes (Hospitalization, Other)
  Sender: FDA-Public Use
  Company Number: US-BAYER-200829107GPV

PATIENT
  Age: 40 Year
  Sex: Female
  Weight: 71 kg

DRUGS (5)
  1. CAMPATH [Suspect]
     Indication: IMMUNOSUPPRESSION
     Route: 065
     Dates: start: 20040207, end: 20040214
  2. THYMOGLOBULIN [Suspect]
     Indication: PANCREAS TRANSPLANT REJECTION
     Route: 042
     Dates: start: 20040217, end: 20040217
  3. TACROLIMUS [Concomitant]
     Indication: IMMUNOSUPPRESSION
  4. RAPAMUNE [Concomitant]
     Indication: IMMUNOSUPPRESSION
  5. PREDNISONE TAB [Concomitant]
     Dates: start: 20050104

REACTIONS (5)
  - CYTOMEGALOVIRUS INFECTION [None]
  - HAEMOLYTIC ANAEMIA [None]
  - PANCREAS TRANSPLANT REJECTION [None]
  - RASH [None]
  - SOFT TISSUE INFECTION [None]
